FAERS Safety Report 8876265 (Version 1)
Quarter: 2012Q4

REPORT INFORMATION
  Report Type: 
  Country: GB (occurrence: GB)
  Receive Date: 20121031
  Receipt Date: 20121031
  Transmission Date: 20130627
  Serious: Yes (Other)
  Sender: FDA-Public Use
  Company Number: GB-RANBAXY-2012R1-61313

PATIENT
  Age: 19 Year
  Weight: 86 kg

DRUGS (2)
  1. FLUOXETINE [Suspect]
     Indication: DEPRESSED MOOD
     Dosage: UNK
     Route: 048
     Dates: start: 20120820, end: 20120916
  2. FLUOXETINE [Suspect]
     Indication: SUICIDAL IDEATION

REACTIONS (7)
  - Suicidal ideation [Recovering/Resolving]
  - Anxiety [Recovering/Resolving]
  - Condition aggravated [Recovering/Resolving]
  - Fatigue [Recovering/Resolving]
  - Headache [Recovering/Resolving]
  - Impulsive behaviour [Recovering/Resolving]
  - Suicide attempt [Recovering/Resolving]
